FAERS Safety Report 8976146 (Version 1)
Quarter: 2012Q4

REPORT INFORMATION
  Report Type: 
  Country: US (occurrence: US)
  Receive Date: 20121219
  Receipt Date: 20121219
  Transmission Date: 20130627
  Serious: No
  Sender: FDA-Public Use
  Company Number: US-AMGEN-USASP2012065792

PATIENT
  Age: 65 Year
  Sex: Female

DRUGS (3)
  1. PROLIA [Suspect]
     Indication: OSTEOPOROSIS POSTMENOPAUSAL
     Dosage: UNK
     Dates: start: 201204
  2. PROLIA [Suspect]
     Dosage: UNK
     Dates: start: 201204
  3. CLARITIN-D [Concomitant]
     Indication: SINUS DISORDER
     Dosage: UNK

REACTIONS (1)
  - Pruritus [Recovering/Resolving]
